FAERS Safety Report 7658950-9 (Version None)
Quarter: 2011Q3

REPORT INFORMATION
  Report Type: 
  Country: None (occurrence: None)
  Receive Date: 20110805
  Receipt Date: 20110801
  Transmission Date: 20111222
  Serious: Yes (Other)
  Sender: FDA-Public Use
  Company Number: US-ABBOTT-11P-163-0843371-00

PATIENT
  Age: 53 Year
  Sex: Female

DRUGS (5)
  1. HUMIRA [Suspect]
     Indication: CROHN'S DISEASE
     Dates: start: 20080101
  2. HUMIRA [Interacting]
     Dosage: LOADING DOSE
     Dates: start: 20110708, end: 20110708
  3. PAXIL [Interacting]
     Indication: DEPRESSION
     Dosage: DAILY DOSE: 62.5MG
  4. POTASSIUM [Concomitant]
     Indication: PRODUCT USED FOR UNKNOWN INDICATION
  5. LAMICTAL [Interacting]
     Indication: DEPRESSION

REACTIONS (15)
  - CRYING [None]
  - SCAR [None]
  - AMNESIA [None]
  - HYPERTENSION [None]
  - DRUG INEFFECTIVE [None]
  - DIABETES MELLITUS [None]
  - ADHESION [None]
  - INTESTINAL RESECTION [None]
  - ABDOMINAL PAIN [None]
  - ABDOMINAL HERNIA [None]
  - FLUID RETENTION [None]
  - BLOOD TRIGLYCERIDES INCREASED [None]
  - DRUG INTERACTION [None]
  - DIARRHOEA [None]
  - SUICIDAL IDEATION [None]
